FAERS Safety Report 6760619-X (Version None)
Quarter: 2010Q2

REPORT INFORMATION
  Report Type: 
  Country: None (occurrence: None)
  Receive Date: 20100608
  Receipt Date: 20100527
  Transmission Date: 20101027
  Serious: Yes (Other)
  Sender: FDA-Public Use
  Company Number: DE-PFIZER INC-2010066663

PATIENT
  Age: 58 Year
  Sex: Male
  Weight: 100 kg

DRUGS (2)
  1. PEGVISOMANT [Suspect]
     Indication: ACROMEGALY
     Dosage: 30 MG, 1X/DAY
     Dates: start: 20080701
  2. MINRIN [Concomitant]
     Dosage: UNK

REACTIONS (1)
  - NEOPLASM PROGRESSION [None]
